FAERS Safety Report 8435158-0 (Version None)
Quarter: 2012Q2

REPORT INFORMATION
  Report Type: 
  Country: None (occurrence: None)
  Receive Date: 20120614
  Receipt Date: 20120606
  Transmission Date: 20120825
  Serious: Yes (Hospitalization, Other)
  Sender: FDA-Public Use
  Company Number: US-BAYER-2012-057460

PATIENT
  Age: 38 Year
  Sex: Female

DRUGS (21)
  1. TRAZODONE HCL [Concomitant]
     Dosage: 50 MG, 1 EVERY NIGHT AT BEDTIME.
  2. ACETAMINOPHEN [Concomitant]
     Indication: PAIN
     Dosage: 325 MG,1-2 Q, 4 HOURS PRN
  3. MUPIROCIN [Concomitant]
     Dosage: 2 %
  4. YAZ [Suspect]
     Indication: INFERTILITY FEMALE
  5. AVAPRO [Concomitant]
     Dosage: 150 MG, QD
  6. NOHIST-EXT [Concomitant]
     Dosage: EXT CAPLET
  7. LEVAQUIN [Concomitant]
     Dosage: 500 MG, UNK
  8. XANAX [Concomitant]
     Indication: ANXIETY
     Dosage: 0.25 MG, TID, PRN
  9. ACETAMINOPHEN [Concomitant]
     Indication: PYREXIA
  10. ZOLOFT [Concomitant]
     Dosage: 500 MG, 1 QD
  11. AMBIEN [Concomitant]
     Indication: INSOMNIA
     Dosage: 10 MG, PRN
  12. MYLANTA [Concomitant]
     Indication: DYSPEPSIA
     Dosage: 15CC Q 6 HOURS PRN
  13. CEFDINIR [Concomitant]
     Dosage: 300 MG, UNK
  14. DEXAMETHASONE [Concomitant]
  15. AZITHROMYCIN [Concomitant]
     Dosage: 250 MG, UNK
  16. FLUCONAZOLE [Concomitant]
     Dosage: 150 MG, UNK
  17. DOXYCYCLINE [Concomitant]
     Dosage: 100 MG, UNK
  18. NEXIUM [Concomitant]
     Dosage: 400 MG, BID
  19. DULCOLAX [Concomitant]
     Indication: CONSTIPATION
  20. DEXAMETHASONE [Concomitant]
     Dosage: 1.5 MG, UNK
  21. CELEBREX [Concomitant]
     Dosage: 200 MG, BID

REACTIONS (4)
  - GALLBLADDER DISORDER [None]
  - DEEP VEIN THROMBOSIS [None]
  - BILIARY DYSKINESIA [None]
  - PULMONARY EMBOLISM [None]
